FAERS Safety Report 5216303-7 (Version None)
Quarter: 2007Q1

REPORT INFORMATION
  Report Type: 
  Country: None (occurrence: None)
  Receive Date: 20070123
  Receipt Date: 20070116
  Transmission Date: 20070707
  Serious: Yes (Life-Threatening)
  Sender: FDA-Public Use
  Company Number: FR-PFIZER INC-2007003861

PATIENT
  Age: 73 Year
  Sex: Male

DRUGS (7)
  1. ATORVASTATIN CALCIUM [Suspect]
     Route: 048
  2. ANAFRANIL [Suspect]
     Route: 048
  3. DICETEL [Suspect]
     Route: 048
     Dates: start: 20061128, end: 20061130
  4. SERESTA [Suspect]
     Route: 048
  5. TRIATEC [Suspect]
     Route: 048
  6. LORMETAZEPAM [Suspect]
     Route: 048
  7. ESTRACYT [Concomitant]

REACTIONS (4)
  - FACE OEDEMA [None]
  - INJURY ASPHYXIATION [None]
  - PHARYNGEAL OEDEMA [None]
  - SWOLLEN TONGUE [None]
